FAERS Safety Report 4883448-0 (Version None)
Quarter: 2006Q1

REPORT INFORMATION
  Report Type: 
  Country: None (occurrence: None)
  Receive Date: 20060118
  Receipt Date: 20051005
  Transmission Date: 20060701
  Serious: Yes (Hospitalization)
  Sender: FDA-Public Use
  Company Number: US-MERCK-0510USA04343

PATIENT
  Age: 73 Year
  Sex: Female
  Weight: 69 kg

DRUGS (4)
  1. VIOXX [Suspect]
     Indication: BACK PAIN
     Route: 048
     Dates: start: 20000810, end: 20030101
  2. DIOVAN [Concomitant]
     Route: 065
  3. METOPROLOL [Concomitant]
     Route: 065
  4. HYDROCHLOROTHIAZIDE AND TRIAMTERENE [Concomitant]
     Route: 065

REACTIONS (4)
  - ABDOMINAL PAIN [None]
  - ADVERSE EVENT [None]
  - BLADDER PROLAPSE [None]
  - ISCHAEMIC STROKE [None]
